FAERS Safety Report 17698291 (Version 1)
Quarter: 2020Q2

REPORT INFORMATION
  Report Type: Spontaneous
  Country: US (occurrence: US)
  Receive Date: 20200423
  Receipt Date: 20200423
  Transmission Date: 20200714
  Serious: No
  Sender: FDA-Public Use
  Company Number: US-PFIZER INC-2020158894

PATIENT
  Age: 62 Year
  Sex: Female

DRUGS (1)
  1. AROMASIN [Suspect]
     Active Substance: EXEMESTANE
     Indication: ANTIOESTROGEN THERAPY
     Dosage: UNK

REACTIONS (6)
  - Atrophic vulvovaginitis [Unknown]
  - Arthralgia [Unknown]
  - Anxiety [Unknown]
  - Alopecia [Unknown]
  - Vulvovaginal pain [Unknown]
  - Vulvovaginal dryness [Unknown]
